FAERS Safety Report 4395213-1 (Version None)
Quarter: 2004Q3

REPORT INFORMATION
  Report Type: 
  Country: None (occurrence: None)
  Receive Date: 20040706
  Receipt Date: 20040622
  Transmission Date: 20050211
  Serious: Yes (Life-Threatening)
  Sender: FDA-Public Use
  Company Number: 430011X04ITA

PATIENT
  Age: 69 Year
  Sex: Female

DRUGS (6)
  1. NOVANTRONE [Suspect]
     Indication: ACUTE MYELOID LEUKAEMIA
     Dosage: 13 MG
     Dates: start: 20031003, end: 20031012
  2. CYTARABINE [Suspect]
     Indication: ACUTE MYELOID LEUKAEMIA
     Dosage: 180 MG
     Dates: start: 20031008, end: 20031014
  3. ETOPOSIDE [Suspect]
     Indication: ACUTE MYELOID LEUKAEMIA
     Dosage: 180 MG
     Dates: start: 20031008, end: 20031010
  4. MEROPENEM [Concomitant]
  5. TEICOPLANIN [Concomitant]
  6. FLUCONAZOLE [Concomitant]

REACTIONS (4)
  - ASCITES [None]
  - DIALYSIS [None]
  - HEPATIC FAILURE [None]
  - RENAL FAILURE [None]
